FAERS Safety Report 4302790-5 (Version None)
Quarter: 2004Q1

REPORT INFORMATION
  Report Type: 
  Country: None (occurrence: None)
  Receive Date: 20040126
  Receipt Date: 20031014
  Transmission Date: 20041129
  Serious: No
  Sender: FDA-Public Use
  Company Number: USA031049935

PATIENT
  Age: 7 Year
  Sex: Female
  Weight: 29 kg

DRUGS (1)
  1. STRATTERA [Suspect]
     Dosage: 120 MG/DAY

REACTIONS (1)
  - PRESCRIBED OVERDOSE [None]
